FAERS Safety Report 17066973 (Version 1)
Quarter: 2019Q4

REPORT INFORMATION
  Report Type: Spontaneous
  Country: US (occurrence: US)
  Receive Date: 20191116
  Receipt Date: 20191116
  Transmission Date: 20200122
  Serious: Yes (Other)
  Sender: FDA-Public Use
  Company Number: None

PATIENT
  Age: 35 Year
  Sex: Male
  Weight: 81 kg

DRUGS (2)
  1. IBUPROFEN 600MG [Suspect]
     Active Substance: IBUPROFEN
     Indication: PYREXIA
     Dates: start: 20191110, end: 20191115
  2. IBUPROFEN 600MG [Suspect]
     Active Substance: IBUPROFEN
     Indication: NASOPHARYNGITIS

REACTIONS (3)
  - Eye pruritus [None]
  - Lip pruritus [None]
  - Pruritus [None]

NARRATIVE: CASE EVENT DATE: 20191116
